FAERS Safety Report 7357293-0 (Version None)
Quarter: 2011Q1

REPORT INFORMATION
  Report Type: 
  Country: None (occurrence: None)
  Receive Date: 20110311
  Receipt Date: 20110311
  Transmission Date: 20110831
  Serious: Yes (Other)
  Sender: FDA-Public Use
  Company Number: None

PATIENT
  Age: 34 Year
  Sex: Male
  Weight: 78.0187 kg

DRUGS (2)
  1. AZITHROMYCIN [Suspect]
     Indication: COUGH
     Dosage: 250MG TABLETS 1/DAY -2X DAY 1- PO
     Route: 048
     Dates: start: 20110226, end: 20110228
  2. AZITHROMYCIN [Suspect]
     Indication: SINUSITIS
     Dosage: 250MG TABLETS 1/DAY -2X DAY 1- PO
     Route: 048
     Dates: start: 20110226, end: 20110228

REACTIONS (6)
  - AMNESIA [None]
  - ANXIETY [None]
  - DIZZINESS [None]
  - HALLUCINATION, AUDITORY [None]
  - NEUROLOGICAL SYMPTOM [None]
  - VERTIGO [None]
